FAERS Safety Report 25983324 (Version 1)
Quarter: 2025Q4

REPORT INFORMATION
  Report Type: Spontaneous
  Country: EU (occurrence: EU)
  Receive Date: 20251031
  Receipt Date: 20251031
  Transmission Date: 20260117
  Serious: Yes (Other)
  Sender: TEVA
  Company Number: None

PATIENT
  Age: 60 Year
  Sex: Male

DRUGS (2)
  1. CAPECITABINE [Suspect]
     Active Substance: CAPECITABINE
     Indication: Adenocarcinoma of colon
     Dosage: 1500 MG AT BREAKFAST AND 1150 MG AT DINNER / NOT AVAILABLE
     Route: 048
     Dates: start: 202412, end: 20250313
  2. OXALIPLATIN [Suspect]
     Active Substance: OXALIPLATIN
     Indication: Adenocarcinoma of colon
     Dosage: NOT AVAILABLE
     Route: 042
     Dates: start: 202412, end: 20250313

REACTIONS (3)
  - Neutropenia [Recovered/Resolved]
  - Cancer fatigue [Unknown]
  - Tremor [Unknown]

NARRATIVE: CASE EVENT DATE: 20250101
